FAERS Safety Report 15290133 (Version 1)
Quarter: 2018Q3

REPORT INFORMATION
  Report Type: Report from Study
  Country: CA (occurrence: CA)
  Receive Date: 20180817
  Receipt Date: 20180817
  Transmission Date: 20181010
  Serious: Yes (Other)
  Sender: FDA-Public Use
  Company Number: CA-JNJFOC-20180810973

PATIENT
  Age: 51 Year
  Sex: Male
  Weight: 63 kg

DRUGS (4)
  1. GABAPENTIN. [Concomitant]
     Active Substance: GABAPENTIN
     Indication: PAIN
     Dosage: STRENGTH = 400 MG
     Route: 048
  2. CELEXA [Concomitant]
     Active Substance: CITALOPRAM HYDROBROMIDE
     Indication: DEPRESSION
     Dosage: STRENGTH = 20 MG
     Route: 048
  3. TREMFYA [Suspect]
     Active Substance: GUSELKUMAB
     Indication: PSORIASIS
     Dosage: STRENGTH = 100 MG
     Route: 058
     Dates: start: 20170915
  4. IBUPROFEN. [Concomitant]
     Active Substance: IBUPROFEN
     Indication: TENDONITIS
     Dosage: STRENGTH = 300 MG
     Route: 048

REACTIONS (1)
  - Rectal abscess [Recovering/Resolving]

NARRATIVE: CASE EVENT DATE: 201807
